FAERS Safety Report 7605075-4 (Version None)
Quarter: 2011Q3

REPORT INFORMATION
  Report Type: 
  Country: None (occurrence: None)
  Receive Date: 20110713
  Receipt Date: 20091113
  Transmission Date: 20111222
  Serious: Yes (Death, Other)
  Sender: FDA-Public Use
  Company Number: US-BAYER-200939648NA

PATIENT
  Age: 79 Year
  Sex: Female
  Weight: 55 kg

DRUGS (10)
  1. LASIX [Concomitant]
     Dosage: 125 MG, QD
  2. AMIODARONE HCL [Concomitant]
     Dosage: 300 MG, QD
  3. HEPARIN [Concomitant]
     Dosage: 5000 U, UNK
     Dates: start: 20010531
  4. RED BLOOD CELLS [Concomitant]
     Dosage: 4 U, UNK
     Route: 042
     Dates: start: 20010531
  5. COUMADIN [Concomitant]
     Dosage: 100 DAILY
  6. TRASYLOL [Suspect]
     Indication: PRODUCT USED FOR UNKNOWN INDICATION
     Dosage: 200 ML,PUMP PRIME
     Route: 042
     Dates: start: 20010531, end: 20010531
  7. EVISTA [Concomitant]
     Dosage: 60 MG, QD
  8. PLATELETS [Concomitant]
     Dosage: 3 U, UNK
     Route: 042
     Dates: start: 20010531
  9. LANOXIN [Concomitant]
     Dosage: 125 MG, QD
  10. MANNITOL [Concomitant]
     Dosage: 25
     Dates: start: 20010531

REACTIONS (13)
  - UNEVALUABLE EVENT [None]
  - ANXIETY [None]
  - ANHEDONIA [None]
  - MULTI-ORGAN FAILURE [None]
  - DEATH [None]
  - RENAL FAILURE [None]
  - EMOTIONAL DISTRESS [None]
  - STRESS [None]
  - FEAR [None]
  - INJURY [None]
  - RENAL INJURY [None]
  - PAIN [None]
  - RENAL IMPAIRMENT [None]
